FAERS Safety Report 7576536-1 (Version None)
Quarter: 2011Q2

REPORT INFORMATION
  Report Type: 
  Country: None (occurrence: None)
  Receive Date: 20110628
  Receipt Date: 20100116
  Transmission Date: 20111010
  Serious: Yes (Death, Other)
  Sender: FDA-Public Use
  Company Number: US-BAYER-201011358NA

PATIENT
  Age: 83 Year
  Sex: Male
  Weight: 75 kg

DRUGS (19)
  1. LANOXIN [Concomitant]
     Dosage: 0.125 MG, QD
     Route: 048
  2. ISOVUE-128 [Concomitant]
     Indication: CATHETERISATION CARDIAC
     Dosage: UNK
     Dates: start: 20010829
  3. ZOCOR [Concomitant]
     Dosage: 20 MG, QD
     Route: 048
  4. ZINACEF [Concomitant]
     Dosage: 750 MG, UNK
     Route: 042
     Dates: start: 20010830
  5. SODIUM NITROPRUSSIDE [Concomitant]
     Dosage: UNK
     Route: 042
     Dates: start: 20010830
  6. TRASYLOL [Suspect]
     Indication: CORONARY ARTERY BYPASS
     Dosage: 200 ML PUMP PRIME
     Route: 042
     Dates: start: 20010830, end: 20010830
  7. DIGOXIN [Concomitant]
     Dosage: 0.5 MG, UNK
     Route: 042
     Dates: start: 20010830
  8. LASIX [Concomitant]
     Dosage: 40 MG, BID
     Route: 048
  9. ESMOLOL [Concomitant]
     Dosage: UNK
     Route: 042
     Dates: start: 20010830
  10. RED BLOOD CELLS [Concomitant]
     Dosage: 4 U, UNK
     Route: 042
  11. ACTOS [Concomitant]
     Dosage: 30 MG, QD
     Route: 048
  12. VIOXX [Concomitant]
     Dosage: 25 MG, QD
     Route: 048
  13. ZESTRIL [Concomitant]
     Dosage: 2.5 MG, QD
     Route: 048
  14. PROTAMINE SULFATE [Concomitant]
     Dosage: 500 MG, UNK
     Route: 042
     Dates: start: 20010830
  15. TRASYLOL [Suspect]
     Dosage: 25CC/HR INFUSION
     Route: 042
     Dates: start: 20010830, end: 20010830
  16. ISOVUE-128 [Concomitant]
     Indication: ANGIOGRAM
  17. ACETYLSALICYLIC ACID SRT [Concomitant]
     Dosage: 81 MG, QD
     Route: 048
  18. DOPAMINE HCL [Concomitant]
     Dosage: 5 MCG/KG/MIN
     Route: 042
     Dates: start: 20010830, end: 20010830
  19. PLATELETS [Concomitant]
     Dosage: 10 PACKS
     Route: 042

REACTIONS (14)
  - CEREBROVASCULAR ACCIDENT [None]
  - DEPRESSION [None]
  - INJURY [None]
  - DEATH [None]
  - ANXIETY [None]
  - RENAL INJURY [None]
  - UNEVALUABLE EVENT [None]
  - FEAR [None]
  - RENAL IMPAIRMENT [None]
  - PAIN [None]
  - RENAL FAILURE [None]
  - ORGAN FAILURE [None]
  - CARDIAC DISORDER [None]
  - ANHEDONIA [None]
